FAERS Safety Report 13895868 (Version 1)
Quarter: 2017Q3

REPORT INFORMATION
  Report Type: Spontaneous
  Country: US (occurrence: None)
  Receive Date: 20170817
  Receipt Date: 20170817
  Transmission Date: 20171127
  Serious: Yes (Hospitalization)
  Sender: FDA-Public Use
  Company Number: None

PATIENT
  Age: 33 Year
  Sex: Male

DRUGS (2)
  1. CLONAZOLAM [Suspect]
     Active Substance: CLONAZOLAM
     Indication: ANXIETY
     Dosage: FREQUENCY - CONTINUOUS
     Route: 048
     Dates: end: 20170527
  2. FLUBROMAZOLAM [Suspect]
     Active Substance: FLUBROMAZOLAM

REACTIONS (5)
  - Fall [None]
  - Haematoma [None]
  - Seizure [None]
  - Wrong technique in product usage process [None]
  - Fracture [None]

NARRATIVE: CASE EVENT DATE: 20170601
